FAERS Safety Report 8695017 (Version 3)
Quarter: 2012Q4

REPORT INFORMATION
  Report Type: 
  Country: US (occurrence: US)
  Receive Date: 20120731
  Receipt Date: 20120906
  Transmission Date: 20130627
  Serious: Yes (Hospitalization, Other)
  Sender: FDA-Public Use
  Company Number: US-PFIZER INC-2012178387

PATIENT
  Age: 14 Year
  Sex: Male
  Weight: 67.57 kg

DRUGS (4)
  1. BENEFIX [Suspect]
     Indication: FACTOR IX DEFICIENCY
     Dosage: 6000 IU, as needed
     Dates: end: 2010
  2. BENEFIX [Suspect]
     Dosage: 7000 IU, UNK (given pre-op)
  3. BENEFIX [Suspect]
     Dosage: 4000 IU, 2x/day
     Dates: start: 20120716
  4. BENEFIX [Suspect]
     Dosage: 4000 IU, 1x/day
     Dates: start: 20120719

REACTIONS (3)
  - Appendicitis perforated [Recovered/Resolved]
  - Appendiceal abscess [Recovering/Resolving]
  - Pain [Unknown]
